FAERS Safety Report 6212961-9 (Version None)
Quarter: 2009Q2

REPORT INFORMATION
  Report Type: 
  Country: None (occurrence: None)
  Receive Date: 20090601
  Receipt Date: 20090520
  Transmission Date: 20091009
  Serious: Yes (Other)
  Sender: FDA-Public Use
  Company Number: 2009AL003451

PATIENT
  Age: 71 Year
  Sex: Male

DRUGS (3)
  1. METOCLOPRAMIDE TABLETS USP, [Suspect]
     Dosage: 10 MG; TID
  2. CARBIDOPA AND LEVODOPA USP, 25 MG/250 MG (PUREPAC) [Suspect]
     Indication: PARKINSON'S DISEASE
  3. TRIHEXYPHENIDYL [Concomitant]

REACTIONS (4)
  - CONDITION AGGRAVATED [None]
  - ENCEPHALOPATHY [None]
  - PARKINSON'S DISEASE [None]
  - PERSONALITY CHANGE [None]
